FAERS Safety Report 13133464 (Version 1)
Quarter: 2017Q1

REPORT INFORMATION
  Report Type: Spontaneous
  Country: US (occurrence: US)
  Receive Date: 20170119
  Receipt Date: 20170119
  Transmission Date: 20170428
  Serious: Yes (Disabling)
  Sender: FDA-Public Use
  Company Number: None

PATIENT
  Age: 61 Year
  Sex: Female
  Weight: 86.85 kg

DRUGS (1)
  1. ZETIA [Suspect]
     Active Substance: EZETIMIBE
     Indication: BLOOD CHOLESTEROL INCREASED
     Dosage: ?          QUANTITY:1 TABLET(S);?
     Route: 048
     Dates: start: 20170110, end: 20170119

REACTIONS (7)
  - Arthralgia [None]
  - Rhinorrhoea [None]
  - Headache [None]
  - Back pain [None]
  - Paranasal sinus discomfort [None]
  - Sinus pain [None]
  - Fatigue [None]

NARRATIVE: CASE EVENT DATE: 20170114
